FAERS Safety Report 7716217-4 (Version None)
Quarter: 2011Q3

REPORT INFORMATION
  Report Type: 
  Country: None (occurrence: None)
  Receive Date: 20110829
  Receipt Date: 20110818
  Transmission Date: 20111222
  Serious: Yes (Other)
  Sender: FDA-Public Use
  Company Number: US-ASTRAZENECA-2011SE49555

PATIENT
  Age: 62 Year
  Sex: Female
  Weight: 64.9 kg

DRUGS (7)
  1. SIMVALTA [Concomitant]
     Indication: BIPOLAR DISORDER
     Dosage: 90 MG ONCE
     Route: 048
     Dates: start: 20050101
  2. SEROQUEL XR [Suspect]
     Indication: INSOMNIA
     Dosage: 300 MG ONCE
     Route: 048
     Dates: start: 20010101
  3. NAPROXEN [Concomitant]
     Indication: PAIN
     Route: 048
     Dates: start: 20110501
  4. SIMVALTA [Concomitant]
     Indication: ANXIETY
     Dosage: 90 MG ONCE
     Route: 048
     Dates: start: 20050101
  5. PLONACEPAM [Concomitant]
     Indication: NERVOUS SYSTEM DISORDER
     Route: 048
     Dates: start: 20050101
  6. PLONACEPAM [Concomitant]
     Indication: BIPOLAR DISORDER
     Route: 048
     Dates: start: 20050101
  7. ACETAMINOPHEN AND HYDROCODONE BITARTRATE [Concomitant]
     Indication: PAIN
     Dosage: 7.5-500 TID
     Route: 048
     Dates: start: 20090101

REACTIONS (6)
  - BREAST CANCER [None]
  - OSTEOPOROSIS [None]
  - OFF LABEL USE [None]
  - HEARING IMPAIRED [None]
  - INSOMNIA [None]
  - DRUG DOSE OMISSION [None]
